FAERS Safety Report 11719555 (Version 5)
Quarter: 2016Q1

REPORT INFORMATION
  Report Type: Spontaneous
  Country: JP (occurrence: JP)
  Receive Date: 20151110
  Receipt Date: 20160210
  Transmission Date: 20160525
  Serious: Yes (Hospitalization, Other)
  Sender: FDA-Public Use
  Company Number: JP-PFIZER INC-2015380793

PATIENT
  Age: 85 Year
  Sex: Male
  Weight: 55 kg

DRUGS (3)
  1. MIGLITOL. [Suspect]
     Active Substance: MIGLITOL
     Indication: DIABETES MELLITUS
     Dosage: UNK
     Route: 048
  2. VILDAGLIPTIN [Concomitant]
     Active Substance: VILDAGLIPTIN
     Dosage: UNK
  3. CANDESARTAN CILEXETIL/HYDROCHLOORTHIAZIDE [Concomitant]
     Dosage: UNK

REACTIONS (2)
  - Colitis ischaemic [Recovering/Resolving]
  - Pneumatosis intestinalis [Recovering/Resolving]
